FAERS Safety Report 12397464 (Version 1)
Quarter: 2016Q2

REPORT INFORMATION
  Report Type: Spontaneous
  Country: US (occurrence: None)
  Receive Date: 20160523
  Receipt Date: 20160523
  Transmission Date: 20160815
  Serious: No
  Sender: FDA-Public Use
  Company Number: None

PATIENT
  Age: 69 Year
  Sex: Male

DRUGS (12)
  1. ASPIRIN. [Concomitant]
     Active Substance: ASPIRIN
  2. MULTIVITAMIN [Concomitant]
     Active Substance: VITAMINS
  3. OXYBUTYNIN [Concomitant]
     Active Substance: OXYBUTYNIN
  4. CRESTOR [Concomitant]
     Active Substance: ROSUVASTATIN CALCIUM
  5. FISH OIL [Concomitant]
     Active Substance: FISH OIL
  6. ATENOLOL. [Concomitant]
     Active Substance: ATENOLOL
  7. COQ10 [Concomitant]
     Active Substance: UBIDECARENONE
  8. CINNAMON. [Concomitant]
     Active Substance: CINNAMON
  9. FINASTERIDE. [Concomitant]
     Active Substance: FINASTERIDE
  10. IMITREX [Concomitant]
     Active Substance: SUMATRIPTAN SUCCINATE
  11. VITAMIN C [Concomitant]
     Active Substance: ASCORBIC ACID
  12. SPRYCEL [Suspect]
     Active Substance: DASATINIB
     Indication: LEUKAEMIA
     Route: 048
     Dates: start: 20130809, end: 201505

REACTIONS (2)
  - Pleural effusion [None]
  - Therapy cessation [None]

NARRATIVE: CASE EVENT DATE: 201512
